FAERS Safety Report 25627154 (Version 1)
Quarter: 2025Q3

REPORT INFORMATION
  Report Type: Spontaneous
  Country: US (occurrence: None)
  Receive Date: 20250730
  Receipt Date: 20250730
  Transmission Date: 20251020
  Serious: Yes (Other)
  Sender: FDA-CTU
  Company Number: None

PATIENT
  Age: 29 Year
  Sex: Male
  Weight: 90 kg

DRUGS (4)
  1. 7-HYDROXYMITRAGYNINE [Suspect]
     Active Substance: 7-HYDROXYMITRAGYNINE
     Indication: Anxiety
     Dosage: 5 TABLETS EVERY 12 HOURS ORAL
     Route: 048
     Dates: start: 20250101, end: 20250730
  2. FLUOXETINE [Concomitant]
     Active Substance: FLUOXETINE HYDROCHLORIDE
  3. MIRTAZAPINE [Concomitant]
     Active Substance: MIRTAZAPINE
  4. TRAZODONE [Concomitant]
     Active Substance: TRAZODONE HYDROCHLORIDE

REACTIONS (7)
  - Substance use [None]
  - Withdrawal syndrome [None]
  - Insomnia [None]
  - Tremor [None]
  - Muscle spasms [None]
  - Muscle spasms [None]
  - Abdominal discomfort [None]

NARRATIVE: CASE EVENT DATE: 20250729
